FAERS Safety Report 6978194-3 (Version None)
Quarter: 2010Q3

REPORT INFORMATION
  Report Type: 
  Country: None (occurrence: None)
  Receive Date: 20100913
  Receipt Date: 20100902
  Transmission Date: 20110219
  Serious: Yes (Hospitalization)
  Sender: FDA-Public Use
  Company Number: FR-KINGPHARMUSA00001-K201001112

PATIENT
  Age: 75 Year
  Sex: Male

DRUGS (10)
  1. ALTACE [Suspect]
     Dosage: UNK
     Route: 048
     Dates: start: 20080902
  2. BLINDED THERAPY [Suspect]
     Indication: CARDIAC FAILURE
     Dosage: UNK
     Dates: start: 20061204
  3. DIGOXIN [Concomitant]
     Dosage: UNK
     Dates: start: 20090304
  4. BISOPROLOL [Concomitant]
     Dosage: UNK
     Dates: start: 20100119
  5. ESOMEPRAZOLE MAGNESIUM [Concomitant]
     Dosage: UNK
     Dates: start: 20071221
  6. FUROSEMIDE [Concomitant]
     Dosage: UNK
     Dates: start: 20080924
  7. SINEMET [Concomitant]
     Dosage: UNK
     Dates: start: 20090709
  8. SIMVASTATIN [Concomitant]
     Dosage: UNK
     Dates: start: 20070802
  9. WARFARIN [Concomitant]
     Dosage: UNK
     Dates: start: 20081121
  10. XALATAN [Concomitant]
     Dosage: UNK
     Dates: start: 20061126

REACTIONS (6)
  - ANGINA UNSTABLE [None]
  - ATRIAL FIBRILLATION [None]
  - CARDIAC FAILURE [None]
  - DIZZINESS [None]
  - DYSPNOEA [None]
  - HYPOTENSION [None]
